FAERS Safety Report 11121841 (Version 6)
Quarter: 2015Q4

REPORT INFORMATION
  Report Type: Report from Study
  Country: EC (occurrence: EC)
  Receive Date: 20150519
  Receipt Date: 20151210
  Transmission Date: 20160304
  Serious: Yes (Hospitalization)
  Sender: FDA-Public Use
  Company Number: PHHY2015EC058916

PATIENT
  Age: 11 Year
  Sex: Male
  Weight: 35 kg

DRUGS (3)
  1. EXJADE [Suspect]
     Active Substance: DEFERASIROX
     Dosage: 500 MG (15 MG/KG), QD
     Route: 048
     Dates: start: 20140717, end: 20150930
  2. EXJADE [Suspect]
     Active Substance: DEFERASIROX
     Indication: SICKLE CELL ANAEMIA
     Dosage: 250 MG (5 MG/KG), QD
     Route: 048
     Dates: start: 20120701
  3. EXJADE [Suspect]
     Active Substance: DEFERASIROX
     Dosage: 750 MG, QD
     Route: 048
     Dates: start: 20151207

REACTIONS (9)
  - Immune system disorder [Recovered/Resolved]
  - Ocular icterus [Unknown]
  - Abdominal pain [Unknown]
  - Blood iron increased [Recovered/Resolved]
  - Asthenia [Unknown]
  - Serum ferritin increased [Recovered/Resolved]
  - Serum ferritin increased [Unknown]
  - Sickle cell anaemia with crisis [Unknown]
  - Pain in extremity [Unknown]

NARRATIVE: CASE EVENT DATE: 20150421
